FAERS Safety Report 9795570 (Version 2)
Quarter: 2014Q2

REPORT INFORMATION
  Report Type: Spontaneous
  Country: US (occurrence: US)
  Receive Date: 20140103
  Receipt Date: 20140516
  Transmission Date: 20141212
  Serious: Yes (Hospitalization)
  Sender: FDA-Public Use
  Company Number: US-BAYER-2014-000794

PATIENT
  Age: 43 Year
  Sex: Female
  Weight: 126.98 kg

DRUGS (15)
  1. YASMIN [Suspect]
     Indication: DYSFUNCTIONAL UTERINE BLEEDING
  2. SINGULAIR [Concomitant]
     Dosage: 10 MG, UNK
  3. LIPITOR [Concomitant]
     Dosage: 10 MG, UNK
  4. KLONOPIN [Concomitant]
     Dosage: 0.5 MG, UNK
  5. ZOLOFT [Concomitant]
     Dosage: 250 MG, UNK
  6. PRILOSEC [Concomitant]
     Dosage: 30 MG, UNK
  7. VENTOLIN [Concomitant]
     Route: 045
  8. LANTUS [Concomitant]
     Dosage: 50 U, MORNING
  9. MULTIVITAMIN [Concomitant]
  10. IBUPROFEN [Concomitant]
     Dosage: 400 MG, UNK
  11. NAPROXEN [Concomitant]
     Dosage: 550 MG, UNK
  12. HYDROCODONE W/APAP [Concomitant]
     Dosage: 5/500MG
  13. CYCLOBENZAPRINE [Concomitant]
     Dosage: 10 MG, UNK
  14. NITROGLYCERIN [Concomitant]
     Route: 060
  15. PERCOCET [Concomitant]
     Indication: PAIN MANAGEMENT

REACTIONS (1)
  - Pulmonary embolism [Recovered/Resolved]
